FAERS Safety Report 4263718-X (Version None)
Quarter: 2004Q1

REPORT INFORMATION
  Report Type: 
  Country: None (occurrence: None)
  Receive Date: 20040102
  Receipt Date: 20031217
  Transmission Date: 20041129
  Serious: Yes (Life-Threatening, Hospitalization, Disabling)
  Sender: FDA-Public Use
  Company Number: GBS001106994

PATIENT
  Age: 90 Year
  Sex: Female

DRUGS (4)
  1. ZYPREXA [Suspect]
     Indication: SCHIZOPHRENIA
     Dosage: 2.5 MG/IN THE EVNEING
     Dates: start: 20000817, end: 20001122
  2. ASPIRIN [Concomitant]
  3. LANSOPRAZOLE [Concomitant]
  4. HALOPERIDOL [Concomitant]

REACTIONS (5)
  - BRADYCARDIA [None]
  - FALL [None]
  - FEMUR FRACTURE [None]
  - HYPOTENSION [None]
  - SUPRAVENTRICULAR EXTRASYSTOLES [None]
